FAERS Safety Report 5746545-3 (Version None)
Quarter: 2008Q2

REPORT INFORMATION
  Report Type: 
  Country: None (occurrence: None)
  Receive Date: 20080522
  Receipt Date: 20080123
  Transmission Date: 20081010
  Serious: Yes (Disabling)
  Sender: FDA-Public Use
  Company Number: US-BRISTOL-MYERS SQUIBB COMPANY-14051973

PATIENT
  Age: 14 Year
  Sex: Female

DRUGS (4)
  1. CYTOXAN [Suspect]
     Indication: BRAIN NEOPLASM MALIGNANT
     Dates: start: 20070802
  2. ETOPOSIDE [Suspect]
     Indication: BRAIN NEOPLASM MALIGNANT
     Dosage: 50 MG QOD, 100 MG QOD X 21 DAYS; ALTERNATE Q 21 DAYS
     Dates: start: 20070713
  3. THALOMID [Suspect]
     Indication: BRAIN NEOPLASM MALIGNANT
     Dosage: 250MG DAILY FROM 17-JUL-2007 TO AUG-2007; DOSE REDUCED TO 150MG DAILY FROM 27-SEP-2007 TO UNKNOWN.
     Route: 048
     Dates: start: 20070917
  4. CELEBREX [Concomitant]
     Dates: start: 20070713

REACTIONS (1)
  - FATIGUE [None]
